FAERS Safety Report 9495669 (Version 1)
Quarter: 2013Q3

REPORT INFORMATION
  Report Type: Other
  Country: DE (occurrence: DE)
  Receive Date: 20130903
  Receipt Date: 20130903
  Transmission Date: 20140515
  Serious: Yes (Other)
  Sender: FDA-Public Use
  Company Number: DE-BRISTOL-MYERS SQUIBB COMPANY-19228519

PATIENT
  Age: 75 Year
  Sex: Female

DRUGS (4)
  1. MITOMYCIN [Suspect]
     Indication: COLORECTAL CANCER
     Dosage: INJ,BOLUS DAYS 1+22;?10 MG/SQ M ,1 CYCLE;
     Route: 042
  2. 5-FLUOROURACIL [Suspect]
     Indication: COLORECTAL CANCER
     Dosage: 1DF: 2600 MG/SQ M,QW X 6; 1 CYCLE?INJ
     Route: 042
  3. ONCOFOLIC [Suspect]
     Indication: COLORECTAL CANCER
     Dosage: 1DF:500 MG/SQ M,QW X 6;,1 CYCLE?INJ
     Route: 042
  4. IRINOTECAN HCL [Concomitant]

REACTIONS (8)
  - Blood alkaline phosphatase abnormal [Unknown]
  - Alanine aminotransferase abnormal [Unknown]
  - Aspartate aminotransferase abnormal [Unknown]
  - Haemoglobin abnormal [Unknown]
  - Alopecia [Unknown]
  - Granulocytopenia [Unknown]
  - Thrombocytopenia [Unknown]
  - Leukopenia [Unknown]
